FAERS Safety Report 18243530 (Version 1)
Quarter: 2020Q3

REPORT INFORMATION
  Report Type: Spontaneous
  Country: US (occurrence: US)
  Receive Date: 20200908
  Receipt Date: 20200908
  Transmission Date: 20201103
  Serious: Yes (Death)
  Sender: FDA-Public Use
  Company Number: US-JNJFOC-20200841364

PATIENT
  Age: 88 Year
  Sex: Male

DRUGS (13)
  1. ZYTIGA [Suspect]
     Active Substance: ABIRATERONE ACETATE
     Indication: PRODUCT USED FOR UNKNOWN INDICATION
     Route: 048
  2. ALPRAZOLAM. [Concomitant]
     Active Substance: ALPRAZOLAM
  3. DEXAMETHASONE. [Concomitant]
     Active Substance: DEXAMETHASONE
  4. LEKOVIT CA [Concomitant]
     Active Substance: CALCIUM CARBONATE\CHOLECALCIFEROL
  5. IBUPROFEN. [Concomitant]
     Active Substance: IBUPROFEN
  6. ALTACE [Concomitant]
     Active Substance: RAMIPRIL
  7. FLONASE [Concomitant]
     Active Substance: FLUTICASONE PROPIONATE
  8. TRELSTAR [Concomitant]
     Active Substance: TRIPTORELIN PAMOATE
  9. PREDNISONE. [Concomitant]
     Active Substance: PREDNISONE
  10. FINASTERIDE. [Concomitant]
     Active Substance: FINASTERIDE
  11. GABAPENTIN. [Concomitant]
     Active Substance: GABAPENTIN
  12. ASPRIN [Concomitant]
     Active Substance: ASPIRIN
  13. CRESTOR [Concomitant]
     Active Substance: ROSUVASTATIN CALCIUM

REACTIONS (1)
  - Death [Fatal]
